FAERS Safety Report 24841068 (Version 3)
Quarter: 2025Q3

REPORT INFORMATION
  Report Type: Spontaneous
  Country: US (occurrence: US)
  Receive Date: 20250114
  Receipt Date: 20250929
  Transmission Date: 20251021
  Serious: Yes (Hospitalization)
  Sender: REGENERON
  Company Number: US-REGENERON PHARMACEUTICALS, INC.-2025-011789

PATIENT
  Sex: Male

DRUGS (5)
  1. EVKEEZA [Suspect]
     Active Substance: EVINACUMAB-DGNB
     Indication: Type IIa hyperlipidaemia
  2. EVKEEZA [Suspect]
     Active Substance: EVINACUMAB-DGNB
     Dosage: 15 MG/KG, Q4W (EVERY 4 WEEKS)
     Route: 042
     Dates: start: 202411
  3. EZETIMIBE [Concomitant]
     Active Substance: EZETIMIBE
     Indication: Type IIa hyperlipidaemia
     Dosage: 10 MG, QD (DAILY)
     Route: 048
     Dates: end: 202506
  4. LOMITAPIDE [Concomitant]
     Active Substance: LOMITAPIDE
     Indication: Type IIa hyperlipidaemia
     Dosage: 20 MG, QD (ONCE A DAY AT HS)
  5. LOMITAPIDE [Concomitant]
     Active Substance: LOMITAPIDE
     Dosage: 10 MG, QD (DAILY)
     Route: 048

REACTIONS (2)
  - Arthritis [Recovered/Resolved]
  - Tendonitis [Recovered/Resolved]

NARRATIVE: CASE EVENT DATE: 20250102
